FAERS Safety Report 25546686 (Version 3)
Quarter: 2025Q3

REPORT INFORMATION
  Report Type: Spontaneous
  Country: CA (occurrence: CA)
  Receive Date: 20250714
  Receipt Date: 20250903
  Transmission Date: 20251021
  Serious: Yes (Hospitalization, Other)
  Sender: ALEXION PHARMACEUTICALS
  Company Number: CA-AstraZeneca-CH-00905361AM

PATIENT
  Age: 60 Year
  Sex: Male
  Weight: 63.492 kg

DRUGS (2)
  1. BREZTRI [Suspect]
     Active Substance: BUDESONIDE\FORMOTEROL\GLYCOPYRROLATE
     Dosage: UNK, BID
  2. BREZTRI [Suspect]
     Active Substance: BUDESONIDE\FORMOTEROL\GLYCOPYRROLATE
     Dosage: UNK UNK, QD

REACTIONS (25)
  - Vision blurred [Unknown]
  - Heart rate increased [Unknown]
  - Micturition disorder [Unknown]
  - Limb discomfort [Unknown]
  - Cataract [Not Recovered/Not Resolved]
  - Tachycardia [Unknown]
  - Pharyngeal swelling [Unknown]
  - Visual impairment [Unknown]
  - Hypersensitivity [Unknown]
  - Cough [Unknown]
  - Productive cough [Unknown]
  - Throat tightness [Unknown]
  - Rash [Unknown]
  - Urinary retention [Unknown]
  - Neoplasm malignant [Unknown]
  - Oropharyngeal pain [Unknown]
  - Oxygen saturation decreased [Unknown]
  - Dyspnoea [Unknown]
  - Chest pain [Unknown]
  - Sinus disorder [Unknown]
  - Salivary gland mass [Unknown]
  - Medication error [Unknown]
  - Cardiac disorder [Unknown]
  - Oropharyngeal discomfort [Unknown]
  - Influenza [Unknown]
